FAERS Safety Report 9775579 (Version 2)
Quarter: 2014Q1

REPORT INFORMATION
  Report Type: Spontaneous
  Country: US (occurrence: US)
  Receive Date: 20131220
  Receipt Date: 20140318
  Transmission Date: 20141002
  Serious: No
  Sender: FDA-Public Use
  Company Number: US-GALDERMA-US13003732

PATIENT
  Age: 38 Year
  Sex: 0

DRUGS (6)
  1. MIRVASO (BRIMONIDINE) TOPICAL GEL, 0.33% [Suspect]
     Dosage: 0.33%
     Route: 061
     Dates: start: 20131018, end: 20131023
  2. SPIRONOLACTONE [Concomitant]
     Dates: start: 20130830
  3. ORACEA (DOXYCYCLINE, USP) CAPSULES 40 MG [Concomitant]
     Dosage: 40 MG
     Route: 048
     Dates: start: 20130830
  4. BIONECT [Concomitant]
     Route: 061
     Dates: start: 20130830
  5. CERAVE HYDRATING CLEANSER [Concomitant]
  6. AVENE REDNESS RELIEF SPF [Concomitant]

REACTIONS (3)
  - Condition aggravated [Recovered/Resolved]
  - Skin swelling [Recovered/Resolved]
  - Erythema [Recovered/Resolved]
